FAERS Safety Report 7701964-0 (Version None)
Quarter: 2011Q3

REPORT INFORMATION
  Report Type: 
  Country: None (occurrence: None)
  Receive Date: 20110822
  Receipt Date: 20110811
  Transmission Date: 20111222
  Serious: Yes (Other)
  Sender: FDA-Public Use
  Company Number: PHHY2011NL72346

PATIENT
  Sex: Female

DRUGS (11)
  1. CALCICHEW [Concomitant]
     Dosage: UNK
  2. MOVICOLON [Concomitant]
     Dosage: UNK
  3. ZOMETA [Suspect]
     Dosage: MG/5ML ONCE PER 42 DAYS
     Dates: start: 20110811
  4. DEXAMETHASONE [Concomitant]
  5. LYRICA [Concomitant]
     Dosage: UNK
  6. DICLOFENAC SODIUM [Concomitant]
     Dosage: UNK
  7. TAMOXIFEN CITRATE [Concomitant]
     Dosage: UNK
  8. ACETAMINOPHEN [Concomitant]
     Dosage: UNK
  9. ZOMETA [Suspect]
     Indication: BREAST CANCER
     Dosage: MG/5ML ONCE PER 42 DAYS
     Dates: start: 20100503
  10. ZOMETA [Suspect]
     Dosage: MG/5ML ONCE PER 42 DAYS
     Dates: start: 20110630
  11. ESOMEPRAZOLE MAGNESIUM [Concomitant]
     Dosage: UNK

REACTIONS (5)
  - CONFUSIONAL STATE [None]
  - GAIT DISTURBANCE [None]
  - HAEMATOMA [None]
  - COGNITIVE DISORDER [None]
  - MALAISE [None]
